FAERS Safety Report 22023756 (Version 1)
Quarter: 2023Q1

REPORT INFORMATION
  Report Type: Spontaneous
  Country: US (occurrence: None)
  Receive Date: 20230223
  Receipt Date: 20230223
  Transmission Date: 20230418
  Serious: No
  Sender: FDA-Public Use
  Company Number: US-ROCHE-3009413

PATIENT
  Sex: Female
  Weight: 65.830 kg

DRUGS (6)
  1. XOLAIR [Suspect]
     Active Substance: OMALIZUMAB
     Indication: Asthma
     Dosage: 150 MG AND 75 MG
     Route: 058
     Dates: start: 20210903
  2. SUDAFED [Concomitant]
     Active Substance: PSEUDOEPHEDRINE HYDROCHLORIDE
     Route: 048
     Dates: start: 20210331
  3. TRAMADOL HCL [Concomitant]
     Active Substance: TRAMADOL HYDROCHLORIDE
     Route: 048
     Dates: start: 20210203
  4. ALBUTEROL SULFATE [Concomitant]
     Active Substance: ALBUTEROL SULFATE
     Route: 055
     Dates: start: 20210203
  5. CLARITIN [Concomitant]
     Active Substance: LORATADINE
     Route: 049
     Dates: start: 20210203
  6. EPIPEN [Concomitant]
     Active Substance: EPINEPHRINE
     Route: 042
     Dates: start: 20210331

REACTIONS (1)
  - Conjunctivitis [Unknown]
